FAERS Safety Report 19089364 (Version 3)
Quarter: 2021Q4

REPORT INFORMATION
  Report Type: Report from Study
  Country: UG (occurrence: UG)
  Receive Date: 20210403
  Receipt Date: 20211231
  Transmission Date: 20220304
  Serious: Yes (Life-Threatening, Hospitalization, Other)
  Sender: FDA-Public Use
  Company Number: UG-CIPLA LTD.-2021UG02475

PATIENT

DRUGS (5)
  1. LOPINAVIR\RITONAVIR [Suspect]
     Active Substance: LOPINAVIR\RITONAVIR
     Indication: HIV infection
     Dosage: 3 DOSAGE FORM, BID (120MG/30MG)
     Route: 048
     Dates: start: 20170710, end: 20181126
  2. ABACAVIR\LAMIVUDINE [Suspect]
     Active Substance: ABACAVIR\LAMIVUDINE
     Indication: HIV infection
     Dosage: 1.5 DOSAGE FORM, BID (90MG/45MG)
     Route: 048
     Dates: start: 20170710, end: 20181126
  3. BETNOVATE [Concomitant]
     Active Substance: BETAMETHASONE
     Indication: Rash papular
     Dosage: UNK
     Route: 065
     Dates: start: 20170710
  4. CETIRIZINE HYDROCHLORIDE [Concomitant]
     Active Substance: CETIRIZINE HYDROCHLORIDE
     Indication: Rash papular
     Dosage: 2.5 MILLIGRAM, UNK
     Route: 065
     Dates: start: 20170710
  5. ARTEMETHER\LUMEFANTRINE [Concomitant]
     Active Substance: ARTEMETHER\LUMEFANTRINE
     Indication: Malaria
     Dosage: 20 MG + 120 MG, BID
     Route: 065
     Dates: start: 20170728, end: 20170730

REACTIONS (12)
  - Anaemia [Recovered/Resolved]
  - Idiopathic interstitial pneumonia [Unknown]
  - Malnutrition [Recovered/Resolved]
  - Interstitial lung disease [Recovered/Resolved]
  - Hypochromic anaemia [Recovered/Resolved]
  - Respiratory tract infection [Not Recovered/Not Resolved]
  - Pneumonia [Recovered/Resolved]
  - Viral rash [Recovered/Resolved]
  - Cough [Recovered/Resolved]
  - Dermatitis [Recovered/Resolved]
  - Rash papular [Recovering/Resolving]
  - Diarrhoea [Recovered/Resolved]

NARRATIVE: CASE EVENT DATE: 20170710
